FAERS Safety Report 6041726-6 (Version None)
Quarter: 2009Q1

REPORT INFORMATION
  Report Type: 
  Country: None (occurrence: None)
  Receive Date: 20090116
  Receipt Date: 20090108
  Transmission Date: 20090719
  Serious: Yes (Hospitalization)
  Sender: FDA-Public Use
  Company Number: IN-ELI_LILLY_AND_COMPANY-IN200901001164

PATIENT
  Sex: Male

DRUGS (3)
  1. HUMALOG [Suspect]
     Indication: TYPE 2 DIABETES MELLITUS
     Dosage: UNK UNK, 3/D
     Route: 058
     Dates: end: 20090108
  2. HUMALOG [Suspect]
     Dosage: 36 IU, DAILY (1/D)
  3. HUMALOG [Suspect]
     Dosage: 30 IU, EACH EVENING

REACTIONS (2)
  - DIABETES MELLITUS INADEQUATE CONTROL [None]
  - HOSPITALISATION [None]
